FAERS Safety Report 10870484 (Version 1)
Quarter: 2015Q1

REPORT INFORMATION
  Report Type: Spontaneous
  Country: FR (occurrence: None)
  Receive Date: 20150223
  Receipt Date: 20150223
  Transmission Date: 20150721
  Serious: Yes (Life-Threatening)
  Sender: FDA-Public Use
  Company Number: 2747087

PATIENT
  Age: 54 Year
  Sex: Male

DRUGS (6)
  1. PANITUMUMAB [Suspect]
     Active Substance: PANITUMUMAB
     Indication: COLON CANCER METASTATIC
     Dosage: INTRAVENOUS (NOT OTHERWISE SPECIFIED)
     Route: 042
     Dates: start: 20140922, end: 20141020
  2. IRINOTECAN HYDROCHLORIDE. [Suspect]
     Active Substance: IRINOTECAN HYDROCHLORIDE
     Indication: COLON CANCER METASTATIC
     Dosage: INTRAVENOUS (NOT OTHERWISE SPECIFIED)
     Route: 042
     Dates: start: 201404, end: 20141020
  3. RALTITREXED DISODIUM [Suspect]
     Active Substance: RALTITREXED
     Indication: COLON CANCER METASTATIC
     Dosage: INTRAVENOUS (NOT OTHERWISE SPECIFIED)
     Route: 042
     Dates: start: 201404, end: 20141020
  4. ERBITUX [Concomitant]
     Active Substance: CETUXIMAB
  5. TETRALYSAL /00052901/ [Suspect]
     Active Substance: LYMECYCLINE
     Indication: RASH
     Dosage: 1 DF (DOSAGE FORM), 2 DAY
     Route: 048
     Dates: start: 201410, end: 201410
  6. AERIUS/01398501/ [Concomitant]

REACTIONS (5)
  - Drug hypersensitivity [None]
  - Dehydration [None]
  - Colitis ulcerative [None]
  - Acute kidney injury [None]
  - Hypovolaemic shock [None]

NARRATIVE: CASE EVENT DATE: 20140917
